FAERS Safety Report 7590009-1 (Version None)
Quarter: 2011Q3

REPORT INFORMATION
  Report Type: 
  Country: None (occurrence: None)
  Receive Date: 20110705
  Receipt Date: 20110627
  Transmission Date: 20111222
  Serious: Yes (Hospitalization)
  Sender: FDA-Public Use
  Company Number: A0933241A

PATIENT
  Sex: Female
  Weight: 12 kg

DRUGS (1)
  1. CEFUROXIME [Suspect]
     Dosage: 200MG TWICE PER DAY
     Route: 048
     Dates: start: 20110622, end: 20110622

REACTIONS (4)
  - SKIN PLAQUE [None]
  - DRUG HYPERSENSITIVITY [None]
  - ERYTHEMA [None]
  - PRODUCT QUALITY ISSUE [None]
